FAERS Safety Report 8905306 (Version 1)
Quarter: 2012Q4

REPORT INFORMATION
  Report Type: 
  Country: CA (occurrence: CA)
  Receive Date: 20121111
  Receipt Date: 20121111
  Transmission Date: 20130627
  Serious: Yes (Hospitalization, Other)
  Sender: FDA-Public Use
  Company Number: PHHO2005CA16740

PATIENT
  Sex: Female

DRUGS (6)
  1. SANDOSTATIN LAR [Suspect]
     Indication: ACROMEGALY
     Dosage: 30 mg, QMO
     Route: 030
     Dates: start: 20041026
  2. ENDOCET [Concomitant]
     Indication: PAIN
     Dosage: 5mg/325mg, QID
  3. LISINOPRIL [Concomitant]
     Indication: HYPERTENSION
     Dosage: 20 mg, QHS
  4. OXAZEPAM [Concomitant]
     Dosage: 30 mg, QID
  5. HYDROCHLOROTHIAZIDE [Concomitant]
  6. AMITRIPTYLINE [Concomitant]
     Indication: HYPERTENSION
     Dosage: 25 mg, BID

REACTIONS (16)
  - Pain [Unknown]
  - Road traffic accident [Unknown]
  - Limb injury [Unknown]
  - Hernia [Unknown]
  - Polyp [Unknown]
  - Blood pressure increased [Recovered/Resolved]
  - Torticollis [Recovering/Resolving]
  - Fibroadenoma of breast [Unknown]
  - Pain in extremity [Unknown]
  - Neck pain [Unknown]
  - Nasopharyngitis [Unknown]
  - Injection site pain [Unknown]
  - Blood glucose increased [Unknown]
  - Headache [Unknown]
  - Fatigue [Unknown]
  - Hypotension [Unknown]
